FAERS Safety Report 4386214-8 (Version None)
Quarter: 2004Q2

REPORT INFORMATION
  Report Type: 
  Country: None (occurrence: None)
  Receive Date: 20040623
  Receipt Date: 20040614
  Transmission Date: 20050107
  Serious: Yes (Hospitalization)
  Sender: FDA-Public Use
  Company Number: 2004CG01135

PATIENT
  Age: 81 Year
  Sex: Female

DRUGS (6)
  1. NEXIUM [Suspect]
     Dosage: 1 DF DAILY PO
     Route: 048
     Dates: start: 20040412, end: 20040417
  2. MORPHINE [Concomitant]
  3. MYOLASTIN [Concomitant]
  4. STILNOX [Concomitant]
  5. CORTANCYL [Concomitant]
  6. DAFALGAN [Concomitant]

REACTIONS (2)
  - SKIN DESQUAMATION [None]
  - TOXIC SKIN ERUPTION [None]
